FAERS Safety Report 6528317-5 (Version None)
Quarter: 2010Q1

REPORT INFORMATION
  Report Type: 
  Country: None (occurrence: None)
  Receive Date: 20100106
  Receipt Date: 20091229
  Transmission Date: 20100710
  Serious: Yes (Hospitalization)
  Sender: FDA-Public Use
  Company Number: PHEH2009US14053

PATIENT
  Sex: Male

DRUGS (1)
  1. EXJADE [Suspect]
     Dosage: 2250 MG DAILY
     Route: 048

REACTIONS (3)
  - ABSCESS DRAINAGE [None]
  - DEBRIDEMENT [None]
  - SURGERY [None]
